FAERS Safety Report 16629805 (Version 1)
Quarter: 2019Q3

REPORT INFORMATION
  Report Type: Spontaneous
  Country: US (occurrence: US)
  Receive Date: 20190612
  Receipt Date: 20190612
  Transmission Date: 20191004
  Serious: No
  Sender: FDA-Public Use
  Company Number: None

PATIENT
  Age: 28 Year
  Sex: Male

DRUGS (1)
  1. TASIGNA [Suspect]
     Active Substance: NILOTINIB
     Dates: start: 201306

REACTIONS (12)
  - Fatigue [None]
  - Weight fluctuation [None]
  - Accident [None]
  - Musculoskeletal stiffness [None]
  - Speech disorder [None]
  - Joint stiffness [None]
  - Arthralgia [None]
  - Decreased appetite [None]
  - Influenza [None]
  - Mood swings [None]
  - Diarrhoea [None]
  - Foot fracture [None]

NARRATIVE: CASE EVENT DATE: 20190612
